FAERS Safety Report 16629830 (Version 1)
Quarter: 2019Q3

REPORT INFORMATION
  Report Type: Spontaneous
  Country: ES (occurrence: ES)
  Receive Date: 20190725
  Receipt Date: 20190725
  Transmission Date: 20191004
  Serious: Yes (Other)
  Sender: FDA-Public Use
  Company Number: ES-TEVA-2019-ES-1081987

PATIENT
  Age: 60 Year
  Sex: Female

DRUGS (11)
  1. DELTIUS 25.000 UI/2,5 ML SOLUCION ORAL [Concomitant]
  2. CILOSTAZOL 100 MG 56 COMPRIMIDOS [Suspect]
     Active Substance: CILOSTAZOL
     Indication: ARTERIAL INSUFFICIENCY
     Route: 048
     Dates: start: 20190415, end: 20190430
  3. ESOMEPRAZOL 20 MG 56 CAPSULAS [Concomitant]
     Route: 048
  4. ATORVASTATINA/EZETIMIBA 40 MG/10 MG COMPRIMIDO [Concomitant]
     Dosage: AT DINNER
     Route: 048
  5. ADIRO 100 MG COMPRIMIDOS GASTRORRESISTENTES EFG [Concomitant]
     Active Substance: ASPIRIN
     Dosage: AT DINNER
     Route: 048
  6. BROMURO UMECLIDINIO [Concomitant]
     Dosage: INHALER IN THE MORNING
     Route: 055
  7. DULOXETINA 60 MG COMPRIMIDO [Concomitant]
     Dosage: 90 MILLIGRAM DAILY; 60 MG IN THE MORNING AND 30 MG IN FOOD
     Route: 048
  8. TERBASMIN TURBUHALER 500 MICROGRAMOS/INHALACION POLVO PARA INHALACION [Concomitant]
     Route: 055
  9. VENTOLIN [Concomitant]
     Active Substance: ALBUTEROL SULFATE
     Route: 055
  10. MIRTAZAPINA 15 MG 30 COMPRIMIDOS [Concomitant]
     Dosage: AT DINNER
     Route: 048
  11. FOSAVANCE 70 MG/5.600 UI COMPRIMIDOS, 4 COMPRIMIDOS [Concomitant]
     Route: 048

REACTIONS (4)
  - Anxiety [Recovered/Resolved]
  - Myalgia [Recovered/Resolved]
  - Malaise [Recovered/Resolved]
  - Palpitations [Recovered/Resolved]

NARRATIVE: CASE EVENT DATE: 201904
